FAERS Safety Report 21327833 (Version 1)
Quarter: 2022Q3

REPORT INFORMATION
  Report Type: Spontaneous
  Country: US (occurrence: None)
  Receive Date: 20220912
  Receipt Date: 20220912
  Transmission Date: 20221027
  Serious: Yes (Other)
  Sender: FDA-Public Use
  Company Number: None

PATIENT
  Age: 36 Year
  Sex: Female
  Weight: 63 kg

DRUGS (5)
  1. HERBALS\MITRAGYNINE [Suspect]
     Active Substance: HERBALS\MITRAGYNINE
     Indication: Anxiety
     Route: 048
     Dates: start: 20180101
  2. HERBALS\MITRAGYNINE [Suspect]
     Active Substance: HERBALS\MITRAGYNINE
     Indication: Depression
  3. VITAMIN D3 [Concomitant]
     Active Substance: CHOLECALCIFEROL
  4. MAGNESIUM [Concomitant]
     Active Substance: MAGNESIUM
  5. VITAMIN B12 [Concomitant]
     Active Substance: CYANOCOBALAMIN

REACTIONS (11)
  - Dependence [None]
  - Pain [None]
  - Withdrawal syndrome [None]
  - Vomiting [None]
  - Cold sweat [None]
  - Tremor [None]
  - Skin burning sensation [None]
  - Palpitations [None]
  - Weight decreased [None]
  - Loss of personal independence in daily activities [None]
  - Appetite disorder [None]

NARRATIVE: CASE EVENT DATE: 20180101
